FAERS Safety Report 5899329-X (Version None)
Quarter: 2008Q3

REPORT INFORMATION
  Report Type: 
  Country: None (occurrence: None)
  Receive Date: 20080924
  Receipt Date: 20080908
  Transmission Date: 20090109
  Serious: Yes (Hospitalization)
  Sender: FDA-Public Use
  Company Number: WAES 0809USA01998

PATIENT
  Age: 42 Year
  Sex: Female
  Weight: 53.978 kg

DRUGS (10)
  1. ISENTRESS [Suspect]
     Indication: HIV INFECTION
     Dosage: 400 MG/Q12H/PO
     Route: 048
     Dates: start: 20080805, end: 20080910
  2. DARUNAVIR [Suspect]
     Indication: HIV INFECTION
     Dosage: 600 MG/Q12H/PO
     Route: 048
     Dates: start: 20080805, end: 20080828
  3. BACTRIM DS [Concomitant]
  4. TRUVADA [Concomitant]
  5. ETRAVIRINE [Suspect]
     Indication: HIV INFECTION
     Dosage: 200 MG/Q12H/PO
     Route: 048
     Dates: start: 20080805, end: 20080910
  6. ZOFRAN [Concomitant]
  7. AZITHROMYCIN [Concomitant]
  8. SODIUM CHLORIDE 0.9% [Concomitant]
  9. ZIDOVUDINE [Concomitant]
  10. ZOLPIDEM TARTRATE [Concomitant]

REACTIONS (6)
  - BLOOD CALCIUM DECREASED [None]
  - BLOOD MAGNESIUM DECREASED [None]
  - DYSPNOEA EXERTIONAL [None]
  - GASTROOESOPHAGEAL REFLUX DISEASE [None]
  - HAEMOGLOBIN DECREASED [None]
  - PANCREATITIS [None]
